FAERS Safety Report 7557665-5 (Version None)
Quarter: 2011Q2

REPORT INFORMATION
  Report Type: 
  Country: None (occurrence: None)
  Receive Date: 20110620
  Receipt Date: 20110608
  Transmission Date: 20111010
  Serious: Yes (Hospitalization)
  Sender: FDA-Public Use
  Company Number: US-ASTRAZENECA-2011SE35298

PATIENT
  Age: 52 Year
  Sex: Female

DRUGS (3)
  1. BLOOD PRESSURE MEDICATION [Suspect]
     Route: 065
  2. CRESTOR [Suspect]
     Route: 048
  3. NEXIUM [Suspect]
     Route: 048

REACTIONS (1)
  - HYPERTENSION [None]
